FAERS Safety Report 16478707 (Version 1)
Quarter: 2019Q2

REPORT INFORMATION
  Report Type: Spontaneous
  Country: JP (occurrence: JP)
  Receive Date: 20190626
  Receipt Date: 20190626
  Transmission Date: 20190711
  Serious: Yes (Hospitalization, Other)
  Sender: FDA-Public Use
  Company Number: JP-ACTELION-A-CH2019-191794

PATIENT
  Sex: Male

DRUGS (3)
  1. BOSENTAN. [Suspect]
     Active Substance: BOSENTAN
     Indication: PULMONARY ARTERIAL HYPERTENSION
     Dosage: UNK
     Route: 048
     Dates: start: 2009
  2. UPTRAVI [Suspect]
     Active Substance: SELEXIPAG
     Indication: PULMONARY ARTERIAL HYPERTENSION
     Dosage: UNK
     Route: 048
     Dates: start: 201802
  3. TADALAFIL. [Concomitant]
     Active Substance: TADALAFIL
     Dosage: UNK
     Dates: start: 2016

REACTIONS (22)
  - Clubbing [Unknown]
  - Right atrial dilatation [Unknown]
  - Tricuspid valve incompetence [Unknown]
  - Pericardial effusion [Unknown]
  - Pulmonary arterial hypertension [Unknown]
  - Cardiothoracic ratio increased [Unknown]
  - Pulmonary artery dilatation [Unknown]
  - Electrocardiogram S1-S2-S3 pattern [Unknown]
  - Oxygen saturation decreased [Unknown]
  - Abnormal precordial movement [Unknown]
  - Heart sounds abnormal [Unknown]
  - Electrocardiogram ST-T segment abnormal [Unknown]
  - Condition aggravated [Unknown]
  - Jugular vein distension [Unknown]
  - Right ventricular failure [Unknown]
  - Syncope [Unknown]
  - Oedema peripheral [Unknown]
  - Cyanosis central [Unknown]
  - Cardiac murmur [Unknown]
  - Atrioventricular block [Unknown]
  - Polycythaemia [Unknown]
  - Right ventricular dilatation [Unknown]

NARRATIVE: CASE EVENT DATE: 201803
